FAERS Safety Report 14457914 (Version 2)
Quarter: 2018Q1

REPORT INFORMATION
  Report Type: Report from Study
  Country: US (occurrence: US)
  Receive Date: 20180130
  Receipt Date: 20180216
  Transmission Date: 20180509
  Serious: Yes (Death, Other)
  Sender: FDA-Public Use
  Company Number: US-ASTELLAS-2018US004105

PATIENT
  Sex: Female

DRUGS (2)
  1. ISAVUCONAZOLE [Suspect]
     Active Substance: ISAVUCONAZOLE
     Indication: GRAFT VERSUS HOST DISEASE
     Route: 048
     Dates: start: 20180118, end: 20180122
  2. ISAVUCONAZOLE [Suspect]
     Active Substance: ISAVUCONAZOLE
     Indication: ASPERGILLUS INFECTION

REACTIONS (3)
  - Multiple organ dysfunction syndrome [Fatal]
  - Septic shock [Fatal]
  - Off label use [Unknown]
